FAERS Safety Report 12446451 (Version 2)
Quarter: 2017Q4

REPORT INFORMATION
  Report Type: Report from Study
  Country: DE (occurrence: DE)
  Receive Date: 20160608
  Receipt Date: 20171227
  Transmission Date: 20180320
  Serious: Yes (Hospitalization)
  Sender: FDA-Public Use
  Company Number: DE-UCBSA-2016020780

PATIENT
  Age: 60 Year
  Sex: Male

DRUGS (6)
  1. BRIVARACETAM [Suspect]
     Active Substance: BRIVARACETAM
     Indication: EPILEPSY
     Dosage: 50 MG, 2X/DAY (BID)
     Route: 048
     Dates: start: 20160303
  2. CLOBAZAM [Concomitant]
     Active Substance: CLOBAZAM
     Indication: EPILEPSY
     Dosage: 10 MG, 2X/DAY (BID)
     Route: 048
     Dates: start: 20140410
  3. TRISIUM [Concomitant]
     Indication: EPILEPSY
     Dosage: 10 MG, 2X/DAY (BID)
     Route: 048
     Dates: start: 20140410
  4. DIACOMIT [Concomitant]
     Active Substance: STIRIPENTOL
     Dosage: 1000 MG, 2X/DAY (BID)
     Route: 048
     Dates: start: 20160225
  5. DIACOMIT [Concomitant]
     Active Substance: STIRIPENTOL
     Indication: EPILEPSY
     Dosage: 500 MG, 2X/DAY (BID)
     Route: 048
     Dates: start: 201108
  6. DIACOMIT [Concomitant]
     Active Substance: STIRIPENTOL
     Dosage: 750 MG, 2X/DAY (BID)
     Route: 048
     Dates: start: 2016

REACTIONS (2)
  - Fatigue [Recovered/Resolved]
  - Seizure [Recovered/Resolved]

NARRATIVE: CASE EVENT DATE: 201603
